FAERS Safety Report 15670271 (Version 2)
Quarter: 2018Q4

REPORT INFORMATION
  Report Type: Spontaneous
  Country: US (occurrence: US)
  Receive Date: 20181129
  Receipt Date: 20181205
  Transmission Date: 20190205
  Serious: Yes (Other)
  Sender: FDA-Public Use
  Company Number: US-TEVA-000692

PATIENT
  Age: 49 Year
  Sex: Female
  Weight: 81.6 kg

DRUGS (13)
  1. DURAGESIC [Concomitant]
     Active Substance: FENTANYL
  2. CLARINEX /USA/ [Concomitant]
  3. POTASSIUM [Concomitant]
     Active Substance: POTASSIUM
  4. DIPHENHYDRAMINE. [Concomitant]
     Active Substance: DIPHENHYDRAMINE
  5. CARAFATE                                /USA/ [Concomitant]
  6. TENORMIN [Concomitant]
     Active Substance: ATENOLOL
  7. FLONASE [Concomitant]
     Active Substance: FLUTICASONE PROPIONATE
  8. SUCRALFATE. [Concomitant]
     Active Substance: SUCRALFATE
  9. MIRTAZAPINE ORALLY DISINTEGRATING TABLETS 15MG,30MG [Suspect]
     Active Substance: MIRTAZAPINE
     Indication: DEPRESSION
     Dosage: 60 MILLIGRAM DAILY; 60.00 MG, QD
     Route: 048
     Dates: start: 20040115, end: 20040115
  10. REGLAN [Concomitant]
     Active Substance: METOCLOPRAMIDE HYDROCHLORIDE
  11. ZOFRAN [Concomitant]
     Active Substance: ONDANSETRON HYDROCHLORIDE
  12. TIAZAC [Concomitant]
     Active Substance: DILTIAZEM HYDROCHLORIDE
  13. DOXEPIN [Concomitant]
     Active Substance: DOXEPIN

REACTIONS (3)
  - Product taste abnormal [Unknown]
  - Pharyngeal oedema [Unknown]
  - Swollen tongue [Unknown]

NARRATIVE: CASE EVENT DATE: 20040115
